FAERS Safety Report 6996887-9 (Version None)
Quarter: 2010Q3

REPORT INFORMATION
  Report Type: 
  Country: None (occurrence: None)
  Receive Date: 20100918
  Receipt Date: 20090805
  Transmission Date: 20110219
  Serious: No
  Sender: FDA-Public Use
  Company Number: US-WYE-H10474209

PATIENT
  Sex: Female
  Weight: 136.2 kg

DRUGS (18)
  1. EFFEXOR XR [Suspect]
     Indication: DEPRESSION
     Dosage: UNKNOWN START DATE THEN MAY 2008 112.5 MG DAILY TO UNKNOWN DATE AND MAY 2009 150 MG DAILY
     Route: 048
  2. OMEPRAZOLE [Concomitant]
  3. ZOCOR [Concomitant]
  4. HYDROCHLOROTHIAZIDE [Concomitant]
  5. LISINOPRIL [Concomitant]
  6. ATENOLOL [Concomitant]
  7. GEODON [Concomitant]
     Indication: SCHIZOAFFECTIVE DISORDER
     Route: 048
  8. ALLEGRA [Interacting]
     Indication: SEASONAL ALLERGY
     Route: 048
     Dates: start: 20090501, end: 20090501
  9. FISH OIL, HYDROGENATED [Concomitant]
  10. COENZYME Q10 [Concomitant]
  11. CYANOCOBALAMIN [Concomitant]
  12. MELATONIN [Concomitant]
  13. MAGNESIUM [Concomitant]
  14. CENTRUM SILVER [Concomitant]
  15. CALTRATE 600 + VITAMIN D [Concomitant]
  16. ACETYLSALICYLIC ACID [Concomitant]
  17. AVANDIA [Interacting]
     Dosage: UNKNOWN
  18. DETROL [Concomitant]

REACTIONS (4)
  - DRUG EFFECT DECREASED [None]
  - DRUG INTERACTION [None]
  - INSOMNIA [None]
  - PSYCHOMOTOR HYPERACTIVITY [None]
